FAERS Safety Report 25596489 (Version 1)
Quarter: 2025Q3

REPORT INFORMATION
  Report Type: Spontaneous
  Country: EU (occurrence: EU)
  Receive Date: 20250723
  Receipt Date: 20250723
  Transmission Date: 20251021
  Serious: Yes (Hospitalization)
  Sender: ELI LILLY AND COMPANY
  Company Number: EU-ELI_LILLY_AND_COMPANY-ES202507016976

PATIENT
  Age: 56 Year
  Sex: Male

DRUGS (2)
  1. MOUNJARO [Suspect]
     Active Substance: TIRZEPATIDE
     Indication: Weight control
     Route: 065
     Dates: start: 20250507
  2. MESALAMINE [Concomitant]
     Active Substance: MESALAMINE
     Indication: Inflammatory bowel disease
     Dosage: 1 DOSAGE FORM, BID

REACTIONS (14)
  - Cholangitis [Unknown]
  - Drug-induced liver injury [Unknown]
  - Deficiency of bile secretion [Unknown]
  - Choluria [Unknown]
  - Autoimmune pancreatitis [Unknown]
  - Blood bilirubin increased [Unknown]
  - Bilirubin conjugated increased [Unknown]
  - Alanine aminotransferase increased [Unknown]
  - Aspartate aminotransferase increased [Unknown]
  - Gamma-glutamyltransferase increased [Unknown]
  - Blood lactate dehydrogenase increased [Unknown]
  - Cholelithiasis [Recovered/Resolved]
  - Cholecystitis [Unknown]
  - Oedematous pancreatitis [Unknown]

NARRATIVE: CASE EVENT DATE: 20250515
